FAERS Safety Report 5256056-X (Version None)
Quarter: 2007Q1

REPORT INFORMATION
  Report Type: 
  Country: None (occurrence: None)
  Receive Date: 20070301
  Receipt Date: 20070215
  Transmission Date: 20070707
  Serious: Yes (Hospitalization, Other)
  Sender: FDA-Public Use
  Company Number: 2007RR-05842

PATIENT
  Age: 43 Year

DRUGS (13)
  1. CIPROFLOXACIN [Suspect]
     Dosage: 500 MG, BID, ORAL
     Route: 048
     Dates: start: 20061229, end: 20061231
  2. CIPROFLOXACIN [Suspect]
     Dosage: 500 MG, BID, ORAL
     Route: 048
     Dates: start: 20070111, end: 20070112
  3. ACYCLOVIR [Suspect]
     Dosage: SEE IMAGE
     Dates: start: 20061231, end: 20061231
  4. ACYCLOVIR [Suspect]
     Dosage: SEE IMAGE
     Dates: start: 20070102, end: 20070113
  5. ADIZEM-XL [Concomitant]
  6. ALLOPURINOL [Concomitant]
  7. ALL-TRANS-RETINOIC ACID [Concomitant]
  8. CANDESARTAN [Concomitant]
  9. CASPOFUNGIN [Concomitant]
  10. CEFTAZIDIME [Concomitant]
  11. CLOMIPRAMINE HCL [Concomitant]
  12. METRONIDAZOLE [Concomitant]
  13. TEICOPLANIN [Concomitant]

REACTIONS (6)
  - GENERAL PHYSICAL HEALTH DETERIORATION [None]
  - HYPOPERFUSION [None]
  - HYPOVOLAEMIA [None]
  - NEPHRITIS INTERSTITIAL [None]
  - RENAL FAILURE ACUTE [None]
  - SEPSIS [None]
